FAERS Safety Report 4506475-1 (Version None)
Quarter: 2004Q4

REPORT INFORMATION
  Report Type: 
  Country: None (occurrence: None)
  Receive Date: 20041122
  Receipt Date: 20041110
  Transmission Date: 20050328
  Serious: Yes (Other)
  Sender: FDA-Public Use
  Company Number: GB-BRISTOL-MYERS SQUIBB COMPANY-12768081

PATIENT
  Age: 43 Year
  Sex: Male

DRUGS (6)
  1. DAIVONEX [Suspect]
     Indication: PSORIASIS
     Route: 061
     Dates: start: 19950101, end: 20040501
  2. ATORVASTATIN [Suspect]
     Indication: HYPERCHOLESTEROLAEMIA
     Route: 048
     Dates: start: 19990101
  3. DIGOXIN [Concomitant]
     Indication: ATRIAL FIBRILLATION
  4. BETNOVATE [Concomitant]
     Indication: PSORIASIS
     Route: 061
  5. NICORETTE [Concomitant]
     Indication: SMOKER
     Route: 048
  6. PAROXETINE [Concomitant]
     Indication: DEPRESSION

REACTIONS (3)
  - BLOOD ALBUMIN INCREASED [None]
  - BLOOD BILIRUBIN INCREASED [None]
  - BLOOD POTASSIUM INCREASED [None]
